FAERS Safety Report 7617727-0 (Version None)
Quarter: 2011Q3

REPORT INFORMATION
  Report Type: 
  Country: None (occurrence: None)
  Receive Date: 20110718
  Receipt Date: 20110712
  Transmission Date: 20111222
  Serious: Yes (Death, Other)
  Sender: FDA-Public Use
  Company Number: PHHY2011AU62236

PATIENT
  Age: 22 Year
  Sex: Female

DRUGS (4)
  1. MIRTAZAPINE [Suspect]
     Dosage: UNK
  2. DOXYLAMINE SUCCINATE [Interacting]
     Dosage: UNK
  3. METHYLENEDIOXYMETHAMPHETAMINE [Interacting]
     Dosage: UNK
  4. CODEINE SULFATE [Interacting]
     Dosage: UNK

REACTIONS (2)
  - CARBON MONOXIDE POISONING [None]
  - DRUG INTERACTION [None]
